FAERS Safety Report 7905307-9 (Version None)
Quarter: 2011Q4

REPORT INFORMATION
  Report Type: 
  Country: None (occurrence: None)
  Receive Date: 20111109
  Receipt Date: 20100104
  Transmission Date: 20120403
  Serious: Yes (Other)
  Sender: FDA-Public Use
  Company Number: PHHY2010TW14689

PATIENT
  Sex: Male

DRUGS (2)
  1. GLEEVEC [Suspect]
     Indication: GASTROINTESTINAL STROMAL TUMOUR
     Dosage: 600 MG, BID
     Route: 048
     Dates: start: 20090211
  2. GLEEVEC [Suspect]
     Dosage: 2 DF, UNK
     Route: 048

REACTIONS (6)
  - HAEMATOCHEZIA [None]
  - DRUG RESISTANCE [None]
  - MALAISE [None]
  - METASTASES TO BLADDER [None]
  - DIARRHOEA [None]
  - HYPOPHAGIA [None]
